FAERS Safety Report 17793876 (Version 1)
Quarter: 2020Q2

REPORT INFORMATION
  Report Type: Spontaneous
  Country: US (occurrence: US)
  Receive Date: 20200515
  Receipt Date: 20200515
  Transmission Date: 20200714
  Serious: Yes (Death)
  Sender: FDA-Public Use
  Company Number: US-IGSA-SR10010308

PATIENT
  Age: 75 Year
  Sex: Female

DRUGS (1)
  1. GAMUNEX-C [Suspect]
     Active Substance: HUMAN IMMUNOGLOBULIN G
     Indication: MYASTHENIA GRAVIS
     Dosage: 100 G, UNK
     Route: 042
     Dates: start: 20190329, end: 20200430

REACTIONS (1)
  - Death [Fatal]

NARRATIVE: CASE EVENT DATE: 20200430
